FAERS Safety Report 5165990-0 (Version None)
Quarter: 2006Q4

REPORT INFORMATION
  Report Type: 
  Country: None (occurrence: None)
  Receive Date: 20061128
  Receipt Date: 20061115
  Transmission Date: 20070319
  Serious: Yes (Death)
  Sender: FDA-Public Use
  Company Number: 15181

PATIENT
  Age: 2 Year

DRUGS (3)
  1. CYTARABINE [Suspect]
     Indication: MYELOID LEUKAEMIA
  2. FLUDARABINE [Suspect]
     Indication: MYELOID LEUKAEMIA
  3. IDARUBICIN HCL [Suspect]
     Indication: MYELOID LEUKAEMIA

REACTIONS (2)
  - HEPATIC NECROSIS [None]
  - JAUNDICE [None]
